FAERS Safety Report 18249329 (Version 1)
Quarter: 2020Q3

REPORT INFORMATION
  Report Type: Spontaneous
  Country: FR (occurrence: FR)
  Receive Date: 20200909
  Receipt Date: 20200909
  Transmission Date: 20201103
  Serious: Yes (Other)
  Sender: FDA-Public Use
  Company Number: FR-TEVA-2020-FR-1824264

PATIENT
  Age: 79 Year
  Sex: Male
  Weight: 83 kg

DRUGS (2)
  1. TANGANIL [Concomitant]
     Active Substance: ACETYLLEUCINE
     Indication: VERTIGO
     Dosage: UNADMINISTERED PRODUCT , UNIT DOSE : 2 DOSAGE FORMS
     Route: 048
  2. IBUPROFENE [Suspect]
     Active Substance: IBUPROFEN
     Indication: WRONG PRODUCT ADMINISTERED
     Dosage: UNIT DOSE : 1600 MILLIGRAM
     Route: 048
     Dates: start: 20200624, end: 20200626

REACTIONS (3)
  - Respiratory failure [Recovered/Resolved]
  - Localised oedema [Recovered/Resolved]
  - Wrong product administered [Recovered/Resolved]

NARRATIVE: CASE EVENT DATE: 20200624
